FAERS Safety Report 23351586 (Version 5)
Quarter: 2024Q3

REPORT INFORMATION
  Report Type: Spontaneous
  Country: FR (occurrence: None)
  Receive Date: 20231229
  Receipt Date: 20240716
  Transmission Date: 20241017
  Serious: Yes (Other)
  Sender: ASTRAZENECA
  Company Number: 2023A295579

PATIENT
  Age: 5 Month
  Sex: Female

DRUGS (1)
  1. BEYFORTUS [Interacting]
     Active Substance: NIRSEVIMAB-ALIP
     Dosage: SOLUTION FOR INJECTION IN PRE-FILLED SYRINGE ONCE/SINGLE ADMINISTRATION

REACTIONS (9)
  - Lip swelling [Unknown]
  - Wheezing [Unknown]
  - Cough [Unknown]
  - Gastrooesophageal reflux disease [Unknown]
  - Urticaria [Recovered/Resolved]
  - Erythema of eyelid [Recovered/Resolved]
  - Bronchitis [Unknown]
  - Drug interaction [Unknown]
  - Sleep disorder [Unknown]
